FAERS Safety Report 19173158 (Version 1)
Quarter: 2021Q2

REPORT INFORMATION
  Report Type: Spontaneous
  Country: US (occurrence: US)
  Receive Date: 20210422
  Receipt Date: 20210422
  Transmission Date: 20210717
  Serious: Yes (Death)
  Sender: FDA-Public Use
  Company Number: None

PATIENT
  Age: 83 Year
  Sex: Female

DRUGS (3)
  1. RITUXAN [Suspect]
     Active Substance: RITUXIMAB
     Indication: HAEMOLYTIC ANAEMIA
     Route: 042
     Dates: start: 20180130
  2. PROMACTA [Concomitant]
     Active Substance: ELTROMBOPAG OLAMINE
  3. RITUXAN [Suspect]
     Active Substance: RITUXIMAB

REACTIONS (1)
  - Death [None]

NARRATIVE: CASE EVENT DATE: 20210416
